FAERS Safety Report 6823208-4 (Version None)
Quarter: 2010Q3

REPORT INFORMATION
  Report Type: 
  Country: None (occurrence: None)
  Receive Date: 20100702
  Receipt Date: 20100624
  Transmission Date: 20110219
  Serious: Yes (Other)
  Sender: FDA-Public Use
  Company Number: 1000014740

PATIENT
  Age: 90 Year

DRUGS (2)
  1. LEXAPRO [Suspect]
  2. MULTIPLE SSRI'S (NOS) [Concomitant]

REACTIONS (2)
  - CONVULSION [None]
  - HALLUCINATION [None]
